FAERS Safety Report 18797128 (Version 1)
Quarter: 2021Q1

REPORT INFORMATION
  Report Type: Spontaneous
  Country: TR (occurrence: TR)
  Receive Date: 20210127
  Receipt Date: 20210127
  Transmission Date: 20210419
  Serious: Yes (Other)
  Sender: FDA-Public Use
  Company Number: NVSC2021TR017505

PATIENT
  Age: 52 Year
  Sex: Female

DRUGS (1)
  1. ZYKADIA [Suspect]
     Active Substance: CERITINIB
     Indication: LUNG NEOPLASM MALIGNANT
     Dosage: 450 MG, QD (3 TIMES PER DAY)
     Route: 048
     Dates: start: 20201124

REACTIONS (4)
  - Dyspnoea [Unknown]
  - Diabetes mellitus [Unknown]
  - Gait disturbance [Unknown]
  - Off label use [Unknown]
